FAERS Safety Report 9756554 (Version 1)
Quarter: 2013Q4

REPORT INFORMATION
  Report Type: Spontaneous
  Country: US (occurrence: US)
  Receive Date: 20131213
  Receipt Date: 20131213
  Transmission Date: 20140711
  Serious: No
  Sender: FDA-Public Use
  Company Number: US-GLAXOSMITHKLINE-A1045678A

PATIENT
  Age: 35 Year
  Sex: Female

DRUGS (1)
  1. NICODERM CQ CLEAR 21MG [Suspect]
     Indication: EX-TOBACCO USER
     Dosage: 21MG SEE DOSAGE TEXT
     Route: 062
     Dates: start: 20131003

REACTIONS (2)
  - Exposure during pregnancy [Unknown]
  - Drug administration error [Unknown]
